FAERS Safety Report 8666258 (Version 2)
Quarter: 2025Q4

REPORT INFORMATION
  Report Type: Spontaneous
  Country: HK (occurrence: US)
  Receive Date: 20120716
  Receipt Date: 20251201
  Transmission Date: 20260117
  Serious: Yes (Life-Threatening, Hospitalization, Other)
  Sender: ALEXION PHARMACEUTICALS
  Company Number: 2012SE47200

PATIENT
  Age: 22 Year
  Sex: Male

DRUGS (5)
  1. QUETIAPINE FUMARATE [Suspect]
     Active Substance: QUETIAPINE FUMARATE
     Dosage: 350 MILLIGRAM, QD
  2. QUETIAPINE FUMARATE [Suspect]
     Active Substance: QUETIAPINE FUMARATE
  3. HALOPERIDOL [Suspect]
     Active Substance: HALOPERIDOL
     Indication: Mood swings
     Dosage: 5 MILLIGRAM, UNK, FREQUENCY: UNK
  4. HALOPERIDOL [Suspect]
     Active Substance: HALOPERIDOL
     Indication: Hallucination
  5. VALPROIC ACID [Suspect]
     Active Substance: VALPROIC ACID
     Dosage: 400 MILLIGRAM, BID
     Route: 065

REACTIONS (2)
  - Overdose [Unknown]
  - Neuroleptic malignant syndrome [Unknown]
